FAERS Safety Report 9925340 (Version 2)
Quarter: 2014Q1

REPORT INFORMATION
  Report Type: Spontaneous
  Country: ES (occurrence: ES)
  Receive Date: 20140226
  Receipt Date: 20140226
  Transmission Date: 20141002
  Serious: Yes (Hospitalization, Other)
  Sender: FDA-Public Use
  Company Number: ES-009507513-1402ESP006331

PATIENT
  Age: 57 Year
  Sex: Female

DRUGS (6)
  1. REXER FLAS [Suspect]
     Indication: DEPRESSION
     Dosage: 30 MG, QD
     Route: 048
     Dates: start: 20140108, end: 20140126
  2. NOLOTIL [Suspect]
     Indication: INFLUENZA
     Dosage: 575 MG, QD
     Route: 048
     Dates: start: 20140122, end: 20140124
  3. TRILEPTAL [Suspect]
     Indication: DEPRESSION
     Dosage: UNK
     Route: 048
     Dates: start: 20140108, end: 20140126
  4. DOBUPAL [Suspect]
     Indication: DEPRESSION
     Dosage: 150 MG, QD
     Route: 048
     Dates: start: 20140108, end: 20140126
  5. ACETAMINOPHEN [Suspect]
     Route: 048
     Dates: start: 20140122
  6. BISOPROLOL [Concomitant]
     Dosage: 5 MG, QD
     Route: 048
     Dates: start: 20130923

REACTIONS (3)
  - Stevens-Johnson syndrome [Recovered/Resolved]
  - Face oedema [Recovered/Resolved]
  - Rash pruritic [Recovered/Resolved]
